FAERS Safety Report 8506274 (Version 2)
Quarter: 2014Q1

REPORT INFORMATION
  Report Type: Spontaneous
  Country: US (occurrence: US)
  Receive Date: 20120412
  Receipt Date: 20140124
  Transmission Date: 20141002
  Serious: Yes (Other)
  Sender: FDA-Public Use
  Company Number: US-BAYER-2012-033275

PATIENT
  Age: 22 Year
  Sex: Female

DRUGS (5)
  1. YASMIN [Suspect]
     Dosage: UNK
     Dates: start: 200511, end: 201003
  2. WELLBUTRIN [Concomitant]
     Dosage: 300 MG, UNK
  3. XANAX [Concomitant]
     Dosage: 1 MG, UNK
  4. CELEXA [Concomitant]
     Dosage: 20 MG, UNK
  5. AZITHROMYCIN [Concomitant]
     Dosage: 250 MG, UNK

REACTIONS (8)
  - Gallbladder disorder [None]
  - Cholecystitis chronic [None]
  - Post cholecystectomy syndrome [None]
  - Psychological trauma [None]
  - Injury [None]
  - Gallbladder pain [None]
  - Anxiety [None]
  - Gastrointestinal disorder [None]
